FAERS Safety Report 4635401-X (Version None)
Quarter: 2005Q2

REPORT INFORMATION
  Report Type: 
  Country: None (occurrence: None)
  Receive Date: 20050413
  Receipt Date: 62000410
  Transmission Date: 20051028
  Serious: Yes (Death, Other)
  Sender: FDA-Public Use
  Company Number: 05-04-0561

PATIENT
  Age: 76 Year
  Sex: Male

DRUGS (15)
  1. METRONIDAZOLE [Suspect]
     Dosage: SEE IMAGE, INTRAVENOUS
     Route: 042
  2. IKOREL [Suspect]
     Indication: ANGINA PECTORIS
     Dosage: 30MG BD ORAL
     Route: 048
     Dates: start: 20030701, end: 20050313
  3. AMOXICILLIN [Suspect]
     Dosage: 1500MG INTRAVENOUS
     Route: 042
  4. ENALAPRIL [Suspect]
  5. ASPIRIN [Concomitant]
  6. CLOPIDOGREL [Concomitant]
  7. ANGITIL - SLOW RELEASE [Concomitant]
  8. LISINOPRIL [Concomitant]
  9. LANSOPRAZOLE [Concomitant]
  10. FUROSEMIDE [Concomitant]
  11. DIAMORPHINE [Concomitant]
  12. METOCLOPRAMIDE [Concomitant]
  13. SALBUTAMOL [Concomitant]
  14. ACETAMINOPHEN [Concomitant]
  15. ENOXAPARIN SODUM [Concomitant]

REACTIONS (2)
  - MYOCARDIAL INFARCTION [None]
  - TONGUE ULCERATION [None]
